FAERS Safety Report 11342206 (Version 3)
Quarter: 2016Q1

REPORT INFORMATION
  Report Type: Spontaneous
  Country: US (occurrence: US)
  Receive Date: 20150805
  Receipt Date: 20160201
  Transmission Date: 20160525
  Serious: No
  Sender: FDA-Public Use
  Company Number: US-PFIZER INC-2015247672

PATIENT
  Age: 34 Year
  Sex: Female

DRUGS (1)
  1. SUTENT [Suspect]
     Active Substance: SUNITINIB MALATE
     Indication: CONNECTIVE TISSUE NEOPLASM
     Dosage: 50 MG, DAILY
     Route: 048
     Dates: start: 20150719

REACTIONS (4)
  - Diarrhoea [Unknown]
  - Disease progression [Unknown]
  - Connective tissue neoplasm [Unknown]
  - Product use issue [Unknown]
